FAERS Safety Report 6022497-6 (Version None)
Quarter: 2008Q4

REPORT INFORMATION
  Report Type: 
  Country: None (occurrence: None)
  Receive Date: 20081230
  Receipt Date: 20081219
  Transmission Date: 20090506
  Serious: Yes (Other)
  Sender: FDA-Public Use
  Company Number: PHHY2008AT32706

PATIENT
  Age: 34 Year
  Sex: Male

DRUGS (2)
  1. SANDIMMUNE [Suspect]
     Indication: RENAL TRANSPLANT
     Dosage: 100 MG, BID
  2. IMUREK [Suspect]
     Indication: RENAL TRANSPLANT
     Dosage: UNK
     Dates: end: 20071213

REACTIONS (1)
  - BONE MARROW FAILURE [None]
